FAERS Safety Report 19122748 (Version 1)
Quarter: 2021Q2

REPORT INFORMATION
  Report Type: Spontaneous
  Country: FR (occurrence: FR)
  Receive Date: 20210412
  Receipt Date: 20210412
  Transmission Date: 20210717
  Serious: Yes (Other)
  Sender: FDA-Public Use
  Company Number: FR-MYLANLABS-2021M1021245

PATIENT
  Age: 66 Year
  Sex: Male

DRUGS (1)
  1. TADALAFIL. [Suspect]
     Active Substance: TADALAFIL
     Indication: ERECTILE DYSFUNCTION
     Dosage: UNK
     Dates: start: 20210403

REACTIONS (4)
  - Diarrhoea [Recovered/Resolved]
  - Drug ineffective [Unknown]
  - Abdominal pain upper [Recovered/Resolved]
  - Abdominal pain [Recovered/Resolved]

NARRATIVE: CASE EVENT DATE: 20210403
